FAERS Safety Report 15214215 (Version 1)
Quarter: 2018Q3

REPORT INFORMATION
  Report Type: Spontaneous
  Country: US (occurrence: US)
  Receive Date: 20180702
  Receipt Date: 20180702
  Transmission Date: 20181010
  Serious: Yes (Other)
  Sender: FDA-Public Use
  Company Number: None

PATIENT
  Age: 28 Year
  Sex: Female
  Weight: 51.75 kg

DRUGS (2)
  1. NUVARING [Suspect]
     Active Substance: ETHINYL ESTRADIOL\ETONOGESTREL
     Indication: CONTRACEPTION
     Dosage: ?          OTHER FREQUENCY:MONTHLY;?
     Route: 067
     Dates: start: 20170417, end: 20180701
  2. ADVIL [Concomitant]
     Active Substance: IBUPROFEN

REACTIONS (10)
  - Depression [None]
  - Nipple pain [None]
  - Dysmenorrhoea [None]
  - Libido decreased [None]
  - Headache [None]
  - Neck pain [None]
  - Abdominal distension [None]
  - Vulvovaginal pain [None]
  - Abdominal pain upper [None]
  - Breast tenderness [None]

NARRATIVE: CASE EVENT DATE: 20180701
